FAERS Safety Report 5621902-4 (Version None)
Quarter: 2008Q1

REPORT INFORMATION
  Report Type: 
  Country: None (occurrence: None)
  Receive Date: 20080211
  Receipt Date: 20080107
  Transmission Date: 20080703
  Serious: No
  Sender: FDA-Public Use
  Company Number: US-BRISTOL-MYERS SQUIBB COMPANY-14032676

PATIENT
  Sex: Female

DRUGS (4)
  1. IXEMPRA [Suspect]
     Indication: BREAST CANCER
     Route: 042
     Dates: start: 20071231
  2. DECADRON [Concomitant]
     Indication: PREMEDICATION
     Dates: start: 20071231
  3. BENADRYL [Concomitant]
     Indication: PREMEDICATION
     Dates: start: 20071231
  4. ZANTAC [Concomitant]
     Indication: PREMEDICATION
     Dates: start: 20071231

REACTIONS (2)
  - MUSCULOSKELETAL PAIN [None]
  - NAUSEA [None]
